FAERS Safety Report 12784415 (Version 12)
Quarter: 2017Q2

REPORT INFORMATION
  Report Type: Report from Study
  Country: CL (occurrence: CL)
  Receive Date: 20160927
  Receipt Date: 20170630
  Transmission Date: 20170830
  Serious: Yes (Hospitalization, Other)
  Sender: FDA-Public Use
  Company Number: CL-SA-2016SA170672

PATIENT
  Age: 53 Year
  Sex: Female

DRUGS (7)
  1. AUBAGIO [Concomitant]
     Active Substance: TERIFLUNOMIDE
     Route: 048
  2. LEMTRADA [Suspect]
     Active Substance: ALEMTUZUMAB
     Indication: RELAPSING-REMITTING MULTIPLE SCLEROSIS
     Route: 041
     Dates: start: 20160912, end: 20160916
  3. EUTIROX [Concomitant]
     Active Substance: LEVOTHYROXINE SODIUM
  4. PREGABALIN. [Concomitant]
     Active Substance: PREGABALIN
     Indication: RELAPSING-REMITTING MULTIPLE SCLEROSIS
     Route: 048
  5. COPAXONE [Concomitant]
     Active Substance: GLATIRAMER ACETATE
     Route: 058
  6. INSULIN [Concomitant]
     Active Substance: INSULIN NOS
     Indication: DIABETES MELLITUS
     Route: 058
  7. AVONEX [Concomitant]
     Active Substance: INTERFERON BETA-1A
     Route: 030

REACTIONS (17)
  - Pyrexia [Recovered/Resolved]
  - Urine abnormality [Recovered/Resolved]
  - Pyrexia [Recovered/Resolved]
  - Headache [Recovered/Resolved]
  - Abdominal distension [Not Recovered/Not Resolved]
  - Urine analysis abnormal [Not Recovered/Not Resolved]
  - Abdominal pain lower [Unknown]
  - Candiduria [Recovered/Resolved]
  - Viral upper respiratory tract infection [Recovered/Resolved]
  - Anti-thyroid antibody [Not Recovered/Not Resolved]
  - Bronchial obstruction [Recovered/Resolved]
  - Urine odour abnormal [Recovered/Resolved]
  - Citrobacter test positive [Not Recovered/Not Resolved]
  - Urinary tract infection enterococcal [Not Recovered/Not Resolved]
  - Chromaturia [Not Recovered/Not Resolved]
  - Diarrhoea [Not Recovered/Not Resolved]
  - Urinary tract discomfort [Recovered/Resolved]

NARRATIVE: CASE EVENT DATE: 20160912
